FAERS Safety Report 17976935 (Version 1)
Quarter: 2020Q3

REPORT INFORMATION
  Report Type: Spontaneous
  Country: US (occurrence: US)
  Receive Date: 20200702
  Receipt Date: 20200702
  Transmission Date: 20201103
  Serious: Yes (Hospitalization, Other)
  Sender: FDA-Public Use
  Company Number: US-ASTRAZENECA-2020SE81423

PATIENT
  Age: 26153 Day
  Sex: Female

DRUGS (13)
  1. VITAMIN D [Concomitant]
     Active Substance: VITAMIN D NOS
  2. METOLAZONE. [Concomitant]
     Active Substance: METOLAZONE
  3. ATORVASTATIN [Concomitant]
     Active Substance: ATORVASTATIN
     Dosage: 80.0MG UNKNOWN
  4. ASPRIN [Concomitant]
     Active Substance: ASPIRIN
     Dosage: 81.0MG UNKNOWN
  5. SILDENAFIL CITRATE. [Concomitant]
     Active Substance: SILDENAFIL CITRATE
     Dosage: THREE TIMES A DAY
  6. JANUVIA [Concomitant]
     Active Substance: SITAGLIPTIN PHOSPHATE
  7. FARXIGA [Suspect]
     Active Substance: DAPAGLIFLOZIN PROPANEDIOL
     Indication: CARDIAC DISORDER
     Dosage: 5.0MG UNKNOWN
     Route: 048
     Dates: start: 202001, end: 20200202
  8. FISH OIL [Concomitant]
     Active Substance: FISH OIL
  9. ALPRAZOLAM. [Concomitant]
     Active Substance: ALPRAZOLAM
  10. HYDRALAZINE [Concomitant]
     Active Substance: HYDRALAZINE HYDROCHLORIDE
  11. KLOR CON POTASSIUM [Concomitant]
  12. NATEGLINIDE. [Concomitant]
     Active Substance: NATEGLINIDE
  13. WARFARIN [Concomitant]
     Active Substance: WARFARIN

REACTIONS (3)
  - Loss of consciousness [Recovered/Resolved]
  - Renal disorder [Unknown]
  - Blood glucose increased [Recovered/Resolved with Sequelae]

NARRATIVE: CASE EVENT DATE: 20200203
